FAERS Safety Report 25169616 (Version 1)
Quarter: 2025Q2

REPORT INFORMATION
  Report Type: Report from Study
  Country: CA (occurrence: CA)
  Receive Date: 20250407
  Receipt Date: 20250407
  Transmission Date: 20250716
  Serious: Yes (Death, Other)
  Sender: IPSEN
  Company Number: CA-IPSEN Group, Research and Development-2025-07796

PATIENT
  Age: 82 Year
  Sex: Male

DRUGS (21)
  1. LANREOTIDE ACETATE [Suspect]
     Active Substance: LANREOTIDE ACETATE
     Indication: Gastroenteropancreatic neuroendocrine tumour disease
     Dosage: VIA DEEP SUBCUTANEOUS
     Route: 058
     Dates: start: 20240815
  2. LEVOCAR [LEVOCARNITINE] [Concomitant]
  3. TELMISARTAN [Concomitant]
     Active Substance: TELMISARTAN
  4. AMLODIPINE [Concomitant]
     Active Substance: AMLODIPINE BESYLATE
  5. CHLORTHALIDONE [Concomitant]
     Active Substance: CHLORTHALIDONE
  6. BISOPROLOL [Concomitant]
     Active Substance: BISOPROLOL
  7. ALLOPURINOL [Concomitant]
     Active Substance: ALLOPURINOL
  8. TAMSULOSIN [Concomitant]
     Active Substance: TAMSULOSIN
     Dosage: 2 INTO OD
  9. EZETIMIBE [Concomitant]
     Active Substance: EZETIMIBE
  10. TYLENOL [Concomitant]
     Active Substance: ACETAMINOPHEN
     Indication: Pain
  11. DOCUSATE [Concomitant]
     Active Substance: DOCUSATE
  12. SINGULAIR [Concomitant]
     Active Substance: MONTELUKAST SODIUM
  13. ALVESCO [Concomitant]
     Active Substance: CICLESONIDE
     Dosage: ALVESCO INHALERS 2 PUFFS BID
  14. OLODATEROL HYDROCHLORIDE\TIOTROPIUM BROMIDE MONOHYDRATE [Concomitant]
     Active Substance: OLODATEROL HYDROCHLORIDE\TIOTROPIUM BROMIDE MONOHYDRATE
     Dosage: 2 PUFF OD
  15. DUTASTERIDE [Concomitant]
     Active Substance: DUTASTERIDE
  16. VITAMIN C [Concomitant]
     Active Substance: ASCORBIC ACID
  17. CHOLECALCIFEROL [Concomitant]
     Active Substance: CHOLECALCIFEROL
  18. VITAMIN B [Concomitant]
     Active Substance: VITAMIN B
  19. MAGNESIUM [Concomitant]
     Active Substance: MAGNESIUM
  20. SINEMET [Concomitant]
     Active Substance: CARBIDOPA\LEVODOPA
  21. HERBALS\TURMERIC [Concomitant]
     Active Substance: HERBALS\TURMERIC

REACTIONS (2)
  - Death [Fatal]
  - Off label use [Unknown]

NARRATIVE: CASE EVENT DATE: 20240815
